FAERS Safety Report 6097459-3 (Version None)
Quarter: 2009Q1

REPORT INFORMATION
  Report Type: 
  Country: None (occurrence: None)
  Receive Date: 20090227
  Receipt Date: 20080623
  Transmission Date: 20090719
  Serious: No
  Sender: FDA-Public Use
  Company Number: A0734803A

PATIENT
  Age: 15 Year
  Sex: Male
  Weight: 50 kg

DRUGS (2)
  1. IMITREX INJECTION [Suspect]
     Indication: DRUG USE FOR UNKNOWN INDICATION
     Dosage: 6MG UNKNOWN
     Route: 042
  2. UNKNOWN [Concomitant]
     Indication: NAUSEA
     Route: 054

REACTIONS (2)
  - SENSORY DISTURBANCE [None]
  - SLEEP DISORDER [None]
